FAERS Safety Report 8954522 (Version 1)
Quarter: 2012Q4

REPORT INFORMATION
  Report Type: 
  Country: AU (occurrence: AU)
  Receive Date: 20121210
  Receipt Date: 20121210
  Transmission Date: 20130627
  Serious: Yes (Other)
  Sender: FDA-Public Use
  Company Number: PHHY2012AU109188

PATIENT
  Age: 57 Year
  Sex: Male

DRUGS (1)
  1. CLOZARIL [Suspect]
     Dosage: 250 mg, daily
     Dates: start: 1995

REACTIONS (2)
  - Left ventricular hypertrophy [Unknown]
  - Ejection fraction decreased [Unknown]
